FAERS Safety Report 16773547 (Version 1)
Quarter: 2019Q3

REPORT INFORMATION
  Report Type: Spontaneous
  Country: CN (occurrence: CN)
  Receive Date: 20190904
  Receipt Date: 20190904
  Transmission Date: 20191005
  Serious: Yes (Hospitalization, Other)
  Sender: FDA-Public Use
  Company Number: PHHY2019CN204927

PATIENT
  Sex: Male

DRUGS (3)
  1. VOTRIENT [Suspect]
     Active Substance: PAZOPANIB HYDROCHLORIDE
     Indication: RENAL CANCER
     Dosage: 4 DF, QD
     Route: 048
     Dates: start: 20190619
  2. VOTRIENT [Suspect]
     Active Substance: PAZOPANIB HYDROCHLORIDE
     Dosage: 2 DF, QD
     Route: 048
  3. VOTRIENT [Suspect]
     Active Substance: PAZOPANIB HYDROCHLORIDE
     Dosage: 3 DF, QD
     Route: 048

REACTIONS (9)
  - Cerebral circulatory failure [Unknown]
  - Pyrexia [Unknown]
  - Abdominal pain upper [Unknown]
  - Hepatic function abnormal [Recovered/Resolved]
  - Nasal congestion [Unknown]
  - Cough [Unknown]
  - Hair colour changes [Recovering/Resolving]
  - Insomnia [Unknown]
  - Hypertension [Unknown]
